FAERS Safety Report 6638392-5 (Version None)
Quarter: 2010Q1

REPORT INFORMATION
  Report Type: 
  Country: None (occurrence: None)
  Receive Date: 20100317
  Receipt Date: 20100308
  Transmission Date: 20100710
  Serious: Yes (Other)
  Sender: FDA-Public Use
  Company Number: B0638166A

PATIENT
  Sex: Male

DRUGS (2)
  1. FORTUM [Suspect]
     Dosage: 1G PER DAY
     Route: 042
     Dates: start: 20091120, end: 20091126
  2. CIPROFLOXACIN [Concomitant]
     Route: 042
     Dates: start: 20091120

REACTIONS (4)
  - PRURITUS [None]
  - PURPURA [None]
  - RASH [None]
  - TOXIC SKIN ERUPTION [None]
